FAERS Safety Report 26131271 (Version 1)
Quarter: 2025Q4

REPORT INFORMATION
  Report Type: Spontaneous
  Country: EU (occurrence: EU)
  Receive Date: 20251208
  Receipt Date: 20251208
  Transmission Date: 20260117
  Serious: Yes (Death, Hospitalization, Other)
  Sender: TEVA
  Company Number: None

PATIENT
  Age: 90 Year
  Sex: Male
  Weight: 95 kg

DRUGS (1)
  1. METHOTREXATE SODIUM [Suspect]
     Active Substance: METHOTREXATE SODIUM
     Indication: Psoriasis
     Dosage: 25MG/WEEK
     Route: 058
     Dates: start: 1995, end: 202510

REACTIONS (17)
  - Toxicity to various agents [Fatal]
  - Renal injury [Unknown]
  - Granulocyte count decreased [Unknown]
  - Feeding disorder [Unknown]
  - Throat tightness [Unknown]
  - Diarrhoea [Unknown]
  - Pancytopenia [Unknown]
  - Dysphagia [Unknown]
  - Pneumocystis jirovecii pneumonia [Unknown]
  - Dehydration [Unknown]
  - Erythema [Unknown]
  - Toxic epidermal necrolysis [Unknown]
  - Hyperkalaemia [Unknown]
  - Oropharyngeal pain [Unknown]
  - Metabolic acidosis [Unknown]
  - Neutrophil count abnormal [Unknown]
  - Stomatitis [Unknown]

NARRATIVE: CASE EVENT DATE: 20250101
